FAERS Safety Report 13154897 (Version 1)
Quarter: 2017Q1

REPORT INFORMATION
  Report Type: Report from Study
  Country: US (occurrence: US)
  Receive Date: 20170126
  Receipt Date: 20170126
  Transmission Date: 20170428
  Serious: No
  Sender: FDA-Public Use
  Company Number: US-AMGEN-USASL2016181376

PATIENT
  Sex: Female

DRUGS (1)
  1. KYPROLIS [Suspect]
     Active Substance: CARFILZOMIB
     Indication: PLASMA CELL MYELOMA
     Dosage: UNK, Q2WK
     Route: 065

REACTIONS (4)
  - Asthenia [Unknown]
  - Full blood count decreased [Unknown]
  - Pyrexia [Unknown]
  - Dyspnoea [Unknown]
